FAERS Safety Report 13738678 (Version 1)
Quarter: 2017Q3

REPORT INFORMATION
  Report Type: Report from Study
  Country: US (occurrence: US)
  Receive Date: 20170710
  Receipt Date: 20170710
  Transmission Date: 20171127
  Serious: Yes (Other)
  Sender: FDA-Public Use
  Company Number: US-SAOL THERAPEUTICS-2017SAO00229

PATIENT
  Age: 54 Year
  Sex: Female

DRUGS (9)
  1. COMPOUNDED BACLOFEN [Suspect]
     Active Substance: BACLOFEN
     Dosage: 114.97 ?G, \DAY
     Dates: start: 20140724, end: 20140826
  2. COMPOUNDED BACLOFEN [Suspect]
     Active Substance: BACLOFEN
     Dosage: 99.89 ?G, \DAY
     Route: 037
     Dates: start: 20140826
  3. BUPIVACAINE. [Suspect]
     Active Substance: BUPIVACAINE
     Dosage: 2.874 MG, \DAY
     Dates: start: 20140724, end: 20140826
  4. DILAUDID [Suspect]
     Active Substance: HYDROMORPHONE HYDROCHLORIDE
     Dosage: 462.0 ?G, \DAY
     Route: 037
     Dates: start: 20140826
  5. COMPOUNDED BACLOFEN [Suspect]
     Active Substance: BACLOFEN
     Dosage: 142.81 ?G, \DAY
     Route: 037
     Dates: start: 20141021
  6. BUPIVACAINE. [Suspect]
     Active Substance: BUPIVACAINE
     Dosage: 2.497 MG, \DAY
     Route: 037
     Dates: start: 20140826
  7. BUPIVACAINE. [Suspect]
     Active Substance: BUPIVACAINE
     Dosage: 3.570 MG, \DAY
     Route: 037
     Dates: start: 20141021
  8. MORPHINE [Suspect]
     Active Substance: MORPHINE
     Dosage: 4.599 MG, \DAY
     Dates: start: 20140724, end: 20140826
  9. DILAUDID [Suspect]
     Active Substance: HYDROMORPHONE HYDROCHLORIDE
     Dosage: 660.5 ?G, \DAY
     Route: 037
     Dates: start: 20141021

REACTIONS (5)
  - Agitation [Recovered/Resolved]
  - Drug withdrawal syndrome [Recovered/Resolved]
  - Nausea [Recovered/Resolved]
  - Headache [Recovered/Resolved]
  - Anxiety [Recovered/Resolved]

NARRATIVE: CASE EVENT DATE: 20140829
